FAERS Safety Report 5883153-8 (Version None)
Quarter: 2008Q3

REPORT INFORMATION
  Report Type: 
  Country: None (occurrence: None)
  Receive Date: 20080913
  Receipt Date: 20080725
  Transmission Date: 20090109
  Serious: No
  Sender: FDA-Public Use
  Company Number: US-ABBOTT-08P-163-0467418-00

PATIENT
  Sex: Female
  Weight: 73.548 kg

DRUGS (10)
  1. HUMIRA [Suspect]
     Indication: CROHN'S DISEASE
     Route: 050
     Dates: start: 20080501, end: 20080724
  2. LANTUS NOVOLOG [Concomitant]
     Indication: TYPE 2 DIABETES MELLITUS
     Route: 050
  3. INSULIN ASPART [Concomitant]
     Indication: TYPE 2 DIABETES MELLITUS
     Dosage: SLIDING SCALE, 3 IN 1 D
  4. METFORMIN HCL [Concomitant]
     Indication: TYPE 2 DIABETES MELLITUS
     Route: 048
  5. PREDNISONE TAB [Concomitant]
     Indication: CROHN'S DISEASE
     Route: 048
     Dates: start: 20080601
  6. FUROSEMIDE [Concomitant]
     Indication: DRUG USE FOR UNKNOWN INDICATION
     Route: 048
  7. POTASSIUM CHLORIDE [Concomitant]
     Indication: DRUG USE FOR UNKNOWN INDICATION
     Dosage: 2 TABS EVERY NIGHT
     Route: 048
  8. SERTRALINE [Concomitant]
     Indication: DEPRESSION
     Dosage: 2 TABS EVERY NIGHT
     Route: 048
  9. BUSPIRONE HYDROCHLORIDE [Concomitant]
     Indication: DRUG USE FOR UNKNOWN INDICATION
     Route: 048
  10. ESZOPICLONE [Concomitant]
     Indication: INSOMNIA
     Dosage: EVERY NIGHT
     Route: 048

REACTIONS (4)
  - ANIMAL BITE [None]
  - HERPES ZOSTER [None]
  - LOCALISED INFECTION [None]
  - PYREXIA [None]
